FAERS Safety Report 8879243 (Version 1)
Quarter: 2012Q4

REPORT INFORMATION
  Report Type: 
  Country: US (occurrence: US)
  Receive Date: 20121031
  Receipt Date: 20121031
  Transmission Date: 20130627
  Serious: No
  Sender: FDA-Public Use
  Company Number: US-B.I. PHARMACEUTICALS,INC./RIDGEFIELD-2012-BP-18783BP

PATIENT
  Age: 66 Year
  Sex: Female

DRUGS (3)
  1. PRADAXA [Suspect]
     Indication: ATRIAL FIBRILLATION
     Dosage: 300 mg
     Route: 048
     Dates: start: 201108
  2. RHYTMOL [Concomitant]
     Indication: CARDIAC DISORDER
     Route: 048
     Dates: start: 201108
  3. FLURAZEPAM [Concomitant]
     Indication: SLEEP DISORDER
     Route: 048

REACTIONS (2)
  - Epistaxis [Recovered/Resolved]
  - Thrombosis [Recovered/Resolved]
